FAERS Safety Report 12399390 (Version 1)
Quarter: 2016Q2

REPORT INFORMATION
  Report Type: Spontaneous
  Country: DE (occurrence: DE)
  Receive Date: 20160524
  Receipt Date: 20160524
  Transmission Date: 20160815
  Serious: Yes (Other)
  Sender: FDA-Public Use
  Company Number: DE-JNJFOC-20160520595

PATIENT
  Age: 88 Year
  Sex: Female
  Weight: 50 kg

DRUGS (4)
  1. DIGITOXIN [Concomitant]
     Active Substance: DIGITOXIN
     Indication: ATRIAL FIBRILLATION
     Route: 065
     Dates: end: 20160430
  2. XARELTO [Suspect]
     Active Substance: RIVAROXABAN
     Indication: ATRIAL FIBRILLATION
     Route: 048
     Dates: start: 20160430, end: 20160430
  3. TORASEMID [Concomitant]
     Active Substance: TORSEMIDE
     Indication: HYPERTENSION
     Route: 065
     Dates: end: 20160430
  4. XARELTO [Suspect]
     Active Substance: RIVAROXABAN
     Indication: CEREBROVASCULAR ACCIDENT PROPHYLAXIS
     Route: 048
     Dates: start: 20160430, end: 20160430

REACTIONS (3)
  - Aphasia [Not Recovered/Not Resolved]
  - Cerebral infarction [Not Recovered/Not Resolved]
  - Paresis [Not Recovered/Not Resolved]

NARRATIVE: CASE EVENT DATE: 20160430
